FAERS Safety Report 8292014-9 (Version None)
Quarter: 2012Q2

REPORT INFORMATION
  Report Type: 
  Country: None (occurrence: None)
  Receive Date: 20120417
  Receipt Date: 20120410
  Transmission Date: 20120825
  Serious: Yes (Hospitalization)
  Sender: FDA-Public Use
  Company Number: US-US-EMD SERONO, INC.-7078092

PATIENT
  Sex: Male
  Weight: 14 kg

DRUGS (7)
  1. MULTI-VITAMINS [Concomitant]
     Indication: VITAMIN SUPPLEMENTATION
     Route: 048
  2. STEROIDS [Concomitant]
     Indication: MULTIPLE SCLEROSIS RELAPSE
  3. REBIF [Suspect]
     Indication: MULTIPLE SCLEROSIS
     Route: 058
     Dates: start: 20110718, end: 20110815
  4. REBIF [Suspect]
     Route: 058
  5. TYLENOL (CAPLET) [Concomitant]
     Indication: PREMEDICATION
  6. REBIF [Suspect]
     Route: 058
     Dates: start: 20110815, end: 20110818
  7. MOTRIN [Concomitant]
     Indication: PREMEDICATION

REACTIONS (7)
  - LETHARGY [None]
  - PAIN IN EXTREMITY [None]
  - PYREXIA [None]
  - INSOMNIA [None]
  - HEADACHE [None]
  - MULTIPLE SCLEROSIS RELAPSE [None]
  - RASH ERYTHEMATOUS [None]
